FAERS Safety Report 5609325-5 (Version None)
Quarter: 2008Q1

REPORT INFORMATION
  Report Type: 
  Country: None (occurrence: None)
  Receive Date: 20080131
  Receipt Date: 20080128
  Transmission Date: 20080703
  Serious: Yes (Hospitalization, Other)
  Sender: FDA-Public Use
  Company Number: US-ASTRAZENECA-2007UW26725

PATIENT
  Age: 502 Month
  Sex: Female
  Weight: 84.1 kg

DRUGS (4)
  1. SEROQUEL [Suspect]
     Indication: BIPOLAR DISORDER
     Dosage: 25-300 MG
     Route: 048
     Dates: start: 20020101, end: 20030101
  2. SEROQUEL [Suspect]
     Indication: DEPRESSION
     Dosage: 25-300 MG
     Route: 048
     Dates: start: 20020101, end: 20030101
  3. SEROQUEL [Suspect]
     Indication: ANXIETY
     Dosage: 25-300 MG
     Route: 048
     Dates: start: 20020101, end: 20030101
  4. ABILIFY [Concomitant]
     Dates: start: 20060330, end: 20060330

REACTIONS (10)
  - DEHYDRATION [None]
  - DIABETES MELLITUS [None]
  - DIABETIC EYE DISEASE [None]
  - HYPERTENSION [None]
  - JOINT INJURY [None]
  - NEUROPATHY PERIPHERAL [None]
  - PALPITATIONS [None]
  - PANIC ATTACK [None]
  - RENAL FAILURE ACUTE [None]
  - SEXUAL DYSFUNCTION [None]
